FAERS Safety Report 5599437-7 (Version None)
Quarter: 2008Q1

REPORT INFORMATION
  Report Type: 
  Country: None (occurrence: None)
  Receive Date: 20080122
  Receipt Date: 20080112
  Transmission Date: 20080703
  Serious: Yes (Hospitalization)
  Sender: FDA-Public Use
  Company Number: US-PFIZER INC-2008003349

PATIENT
  Age: 65 Year
  Sex: Female
  Weight: 59 kg

DRUGS (1)
  1. SU-011,248 [Suspect]
     Indication: UTERINE LEIOMYOSARCOMA
     Route: 048

REACTIONS (13)
  - BLOOD CREATININE INCREASED [None]
  - CONFUSIONAL STATE [None]
  - DEHYDRATION [None]
  - DIARRHOEA [None]
  - DYSGEUSIA [None]
  - ELECTROLYTE IMBALANCE [None]
  - FATIGUE [None]
  - MEMORY IMPAIRMENT [None]
  - MENTAL STATUS CHANGES [None]
  - NAUSEA [None]
  - SUDDEN ONSET OF SLEEP [None]
  - VOMITING [None]
  - WEIGHT DECREASED [None]
